FAERS Safety Report 24035693 (Version 2)
Quarter: 2024Q3

REPORT INFORMATION
  Report Type: Spontaneous
  Country: KR (occurrence: KR)
  Receive Date: 20240701
  Receipt Date: 20240710
  Transmission Date: 20241017
  Serious: No
  Sender: PFIZER
  Company Number: KR-PFIZER INC-202400197084

PATIENT
  Age: 5 Decade
  Sex: Male

DRUGS (2)
  1. SOMATROPIN [Suspect]
     Active Substance: SOMATROPIN
     Dosage: UNK, DAILY
  2. SOMATROPIN [Suspect]
     Active Substance: SOMATROPIN
     Dosage: 0.1 DAILY

REACTIONS (4)
  - Wrong technique in device usage process [Unknown]
  - Exposure via skin contact [Unknown]
  - Device information output issue [Unknown]
  - Device leakage [Unknown]
